FAERS Safety Report 9084058 (Version 1)
Quarter: 2013Q1

REPORT INFORMATION
  Report Type: Spontaneous
  Country: US (occurrence: US)
  Receive Date: 20130131
  Receipt Date: 20130131
  Transmission Date: 20140127
  Serious: No
  Sender: FDA-Public Use
  Company Number: US-PFIZER INC-2013032657

PATIENT
  Sex: Female

DRUGS (4)
  1. CALTRATE WITH VITAMIN D [Suspect]
     Dosage: UNK
  2. LIPITOR [Suspect]
     Dosage: UNK
  3. GLUCOPHAGE [Suspect]
     Dosage: UNK
  4. HYDRALAZINE [Suspect]
     Dosage: UNK

REACTIONS (2)
  - Rash [Unknown]
  - Pruritus [Unknown]
